FAERS Safety Report 12784804 (Version 1)
Quarter: 2016Q3

REPORT INFORMATION
  Report Type: Spontaneous
  Country: SE (occurrence: SE)
  Receive Date: 20160927
  Receipt Date: 20160927
  Transmission Date: 20161109
  Serious: Yes (Other)
  Sender: FDA-Public Use
  Company Number: SE-TEVA-2016-16627

PATIENT
  Age: 83 Year
  Sex: Male

DRUGS (9)
  1. VENLAFAXIN [Concomitant]
     Active Substance: VENLAFAXINE HYDROCHLORIDE
     Indication: DEPRESSION
     Dosage: 75 MG, UNK
     Route: 065
  2. RISPERIDON ACTAVIS 0.5 [Suspect]
     Active Substance: RISPERIDONE
     Indication: DEPRESSED MOOD
     Route: 065
     Dates: start: 201605, end: 20160715
  3. MEDIKINET [Concomitant]
     Active Substance: METHYLPHENIDATE
     Dosage: 10 MILLIGRAM DAILY; 10 MG 1 IN MORNING
  4. MEDIKINET [Concomitant]
     Active Substance: METHYLPHENIDATE
     Dosage: 10 MILLIGRAM DAILY; TABLET 10 MG 1 IN MORNING
  5. THERALEN [Concomitant]
     Active Substance: TRIMEPRAZINE
     Indication: SLEEP DISORDER
     Dosage: 5 MILLIGRAM DAILY; 5 MG 1 AT NIGHT
  6. MIRTAZAPINE 15 MG [Concomitant]
     Active Substance: MIRTAZAPINE
     Dosage: 15 MG 0.5 TABLET IN THE EVENING (WHEN HE STARTED WITH RISPERIDON THE SECOND TIME)
  7. RISPERIDON ACTAVIS 0.5 [Suspect]
     Active Substance: RISPERIDONE
     Dosage: .5 DOSAGE FORMS DAILY; AFTER DISCONTINUE HE THEN TOOK 0.5 TABLET OF 0.5 MG
     Route: 065
     Dates: start: 201605, end: 20160715
  8. IMDUR [Concomitant]
     Active Substance: ISOSORBIDE MONONITRATE
     Indication: PRODUCT USED FOR UNKNOWN INDICATION
     Dosage: 60 MG, UNK
     Route: 065
  9. RITALIN [Concomitant]
     Active Substance: METHYLPHENIDATE HYDROCHLORIDE
     Indication: PRODUCT USED FOR UNKNOWN INDICATION
     Dosage: IF NEEDED, IN THE MORNING
     Route: 065

REACTIONS (13)
  - Therapy cessation [None]
  - Restlessness [Recovered/Resolved]
  - Product use issue [Recovered/Resolved]
  - Abdominal discomfort [Recovered/Resolved]
  - Feeling abnormal [None]
  - Anxiety [None]
  - Diarrhoea [Recovered/Resolved]
  - Angina pectoris [Recovered/Resolved]
  - Chest pain [Recovered/Resolved]
  - Psychomotor hyperactivity [Recovered/Resolved]
  - Somnolence [None]
  - Off label use [None]
  - Fatigue [None]

NARRATIVE: CASE EVENT DATE: 201605
